FAERS Safety Report 7664774-9 (Version None)
Quarter: 2011Q3

REPORT INFORMATION
  Report Type: 
  Country: None (occurrence: None)
  Receive Date: 20110806
  Receipt Date: 20110131
  Transmission Date: 20111222
  Serious: No
  Sender: FDA-Public Use
  Company Number: US-ABBOTT-11P-163-0701429-00

PATIENT
  Sex: Male

DRUGS (2)
  1. NIASPAN [Suspect]
     Indication: BLOOD CHOLESTEROL INCREASED
     Dosage: AT BEDTIME
     Route: 048
     Dates: start: 20110125
  2. ACTOPLUS MET [Suspect]
     Indication: PRODUCT USED FOR UNKNOWN INDICATION
     Dosage: 15/850 MG
     Route: 048
     Dates: start: 20110125

REACTIONS (5)
  - FATIGUE [None]
  - DIZZINESS [None]
  - TREMOR [None]
  - DIARRHOEA [None]
  - BLOOD GLUCOSE DECREASED [None]
